FAERS Safety Report 8422157-8 (Version None)
Quarter: 2012Q2

REPORT INFORMATION
  Report Type: 
  Country: None (occurrence: None)
  Receive Date: 20120608
  Receipt Date: 20120605
  Transmission Date: 20120825
  Serious: Yes (Other)
  Sender: FDA-Public Use
  Company Number: PL-ROCHE-1075673

PATIENT
  Sex: Male

DRUGS (1)
  1. AVASTIN [Suspect]
     Indication: RENAL CANCER
     Route: 065

REACTIONS (3)
  - PULMONARY NECROSIS [None]
  - BRONCHIAL FISTULA [None]
  - MYOCARDIAL INFARCTION [None]
